FAERS Safety Report 8063901-1 (Version None)
Quarter: 2012Q1

REPORT INFORMATION
  Report Type: 
  Country: None (occurrence: None)
  Receive Date: 20120123
  Receipt Date: 20120112
  Transmission Date: 20120608
  Serious: Yes (Hospitalization)
  Sender: FDA-Public Use
  Company Number: US-BAYER-2011-060289

PATIENT
  Age: 33 Year
  Sex: Female
  Weight: 88.435 kg

DRUGS (2)
  1. LEVORA 0.15/30-21 [Concomitant]
  2. YAZ [Suspect]
     Indication: MENSTRUATION IRREGULAR
     Dosage: UNK
     Dates: start: 20071101, end: 20081101

REACTIONS (5)
  - PAIN [None]
  - GALLBLADDER DISORDER [None]
  - EMOTIONAL DISTRESS [None]
  - CHOLECYSTITIS ACUTE [None]
  - PANCREATITIS [None]
